FAERS Safety Report 7487006-3 (Version None)
Quarter: 2011Q2

REPORT INFORMATION
  Report Type: 
  Country: None (occurrence: None)
  Receive Date: 20110518
  Receipt Date: 20110504
  Transmission Date: 20111010
  Serious: Yes (Hospitalization)
  Sender: FDA-Public Use
  Company Number: US-MYLANLABS-2011S1009506

PATIENT
  Age: 47 Year
  Sex: Male

DRUGS (12)
  1. HYDROXYCHLOROQUINE SULFATE [Suspect]
     Indication: SYSTEMIC LUPUS ERYTHEMATOSUS
     Dosage: INCREASED TO 200MG THREE TIMES DAILY 2 YEARS PRIOR TO ADMISSION
     Route: 065
  2. CALCIUM CARBONATE [Concomitant]
     Route: 065
  3. ASPIRIN [Concomitant]
     Route: 065
  4. CALCITRIOL [Concomitant]
     Route: 065
  5. FLUTICASONE PROPIONATE W/SALMETEROL [Concomitant]
     Route: 055
  6. PREDNISONE [Concomitant]
     Indication: SYSTEMIC LUPUS ERYTHEMATOSUS
     Route: 065
  7. SIMVASTATIN [Concomitant]
     Route: 065
  8. HYDROXYCHLOROQUINE SULFATE [Suspect]
     Dosage: INCREASED FROM 200MG TWICE TIMES DAILY 2 YEARS PRIOR TO ADMISSION
     Route: 065
  9. AMLODIPINE BESYLATE [Concomitant]
     Route: 065
  10. ALBUTEROL [Concomitant]
     Route: 055
  11. MYCOPHENOLATE MOFETIL [Concomitant]
     Indication: PROTEINURIA
     Route: 065
  12. TEMAZ [Concomitant]
     Route: 065

REACTIONS (3)
  - RESTRICTIVE CARDIOMYOPATHY [None]
  - TORSADE DE POINTES [None]
  - CARDIAC ARREST [None]
